FAERS Safety Report 6573518-3 (Version None)
Quarter: 2010Q1

REPORT INFORMATION
  Report Type: 
  Country: None (occurrence: None)
  Receive Date: 20100208
  Receipt Date: 20100201
  Transmission Date: 20100710
  Serious: Yes (Hospitalization)
  Sender: FDA-Public Use
  Company Number: BR-SANOFI-AVENTIS-2010SA006400

PATIENT
  Sex: Female
  Weight: 79 kg

DRUGS (5)
  1. LANTUS [Suspect]
     Indication: TYPE 2 DIABETES MELLITUS
     Route: 058
  2. AUTOPEN 24 [Suspect]
     Route: 058
     Dates: end: 20100124
  3. ORAL ANTIDIABETICS [Concomitant]
     Indication: TYPE 2 DIABETES MELLITUS
     Dosage: 50/850 MG 2 TABS DAILY
     Route: 048
  4. LOSARTAN POTASSIUM [Concomitant]
     Indication: BLOOD PRESSURE
     Dosage: 100/25
     Route: 048
  5. TIBOLONE [Concomitant]
     Indication: HORMONE REPLACEMENT THERAPY
     Dosage: DOSE 2.5 (UNITS UNKNOWN)
     Route: 048

REACTIONS (9)
  - BLOOD GLUCOSE FLUCTUATION [None]
  - CYSTITIS [None]
  - DENGUE FEVER [None]
  - HEADACHE [None]
  - INJECTION SITE HAEMATOMA [None]
  - INJECTION SITE HAEMORRHAGE [None]
  - INJECTION SITE PAIN [None]
  - NECK PAIN [None]
  - URINARY TRACT INFECTION [None]
